FAERS Safety Report 13735785 (Version 1)
Quarter: 2017Q3

REPORT INFORMATION
  Report Type: Spontaneous
  Country: US (occurrence: US)
  Receive Date: 20170708
  Receipt Date: 20170708
  Transmission Date: 20171127
  Serious: Yes (Hospitalization)
  Sender: FDA-Public Use
  Company Number: None

PATIENT
  Age: 32 Year
  Sex: Female
  Weight: 67.05 kg

DRUGS (5)
  1. TYLENOL [Concomitant]
     Active Substance: ACETAMINOPHEN
  2. VALIUM [Concomitant]
     Active Substance: DIAZEPAM
  3. HYDROXYZINE [Concomitant]
     Active Substance: HYDROXYZINE HYDROCHLORIDE
  4. LEXAPRO [Concomitant]
     Active Substance: ESCITALOPRAM OXALATE
  5. DIAZEPAM (TEVA) [Suspect]
     Active Substance: DIAZEPAM
     Indication: TEMPOROMANDIBULAR JOINT SYNDROME
     Dosage: ?          OTHER STRENGTH:MG;QUANTITY:56 TABLET(S);?TWICE A DAY ORAL
     Route: 048

REACTIONS (9)
  - Phobia [None]
  - Vomiting [None]
  - Cold sweat [None]
  - Pyrexia [None]
  - Withdrawal syndrome [None]
  - Amnesia [None]
  - Diarrhoea [None]
  - Tremor [None]
  - Aphasia [None]

NARRATIVE: CASE EVENT DATE: 20170409
